FAERS Safety Report 17623479 (Version 5)
Quarter: 2024Q2

REPORT INFORMATION
  Report Type: Spontaneous
  Country: CA (occurrence: CA)
  Receive Date: 20200403
  Receipt Date: 20240405
  Transmission Date: 20240715
  Serious: Yes (Other)
  Sender: FDA-Public Use
  Company Number: CA-NOVARTISPH-NVSC2020CA091343

PATIENT
  Sex: Female

DRUGS (1)
  1. TEGRETOL [Suspect]
     Active Substance: CARBAMAZEPINE
     Indication: Product used for unknown indication
     Dosage: 200 MG
     Route: 065

REACTIONS (2)
  - Seizure [Unknown]
  - Product colour issue [Unknown]
